FAERS Safety Report 9677500 (Version 3)
Quarter: 2013Q4

REPORT INFORMATION
  Report Type: Spontaneous
  Country: JO (occurrence: JO)
  Receive Date: 20131108
  Receipt Date: 20131218
  Transmission Date: 20140711
  Serious: Yes (Life-Threatening)
  Sender: FDA-Public Use
  Company Number: JO-NOVOPROD-391846

PATIENT
  Age: 51 Year
  Sex: Female
  Weight: 120 kg

DRUGS (12)
  1. VICTOZA [Suspect]
     Indication: TYPE 2 DIABETES MELLITUS
     Dosage: 1.2 MG, QD
     Route: 058
     Dates: start: 20121022
  2. MIXTARD 30 [Suspect]
     Indication: TYPE 2 DIABETES MELLITUS
     Dosage: 3 INJECTIONS DAILY
     Route: 058
     Dates: start: 20101024
  3. GLUCOPHAGE [Concomitant]
     Dosage: 850 MG, TID
  4. BLOPRESS [Concomitant]
     Dosage: 16 MG
  5. ATORVASTATIN [Concomitant]
     Dosage: 20 MG
  6. ACETYLSALICYLIC ACID [Concomitant]
     Dosage: 100 MG, BETAASA
  7. XENICAL [Concomitant]
     Dosage: 120 MG
  8. VITAMIN D3 [Concomitant]
     Dosage: UNK
  9. OMEGA 3                            /01334101/ [Concomitant]
     Dosage: 1 G
  10. OMEPRAZOLE [Concomitant]
     Dosage: 20 MG
  11. NEXIUM                             /01479302/ [Concomitant]
     Dosage: UNK
  12. ASCRIPTIN [Concomitant]
     Dosage: UNK

REACTIONS (1)
  - Invasive ductal breast carcinoma [Not Recovered/Not Resolved]
